FAERS Safety Report 14017091 (Version 1)
Quarter: 2017Q3

REPORT INFORMATION
  Report Type: Spontaneous
  Country: US (occurrence: US)
  Receive Date: 20170927
  Receipt Date: 20170927
  Transmission Date: 20171128
  Serious: No
  Sender: FDA-Public Use
  Company Number: US-BAYER-2017-180800

PATIENT
  Age: 77 Year
  Sex: Female
  Weight: 63.49 kg

DRUGS (4)
  1. ALEVE [Suspect]
     Active Substance: NAPROXEN SODIUM
     Indication: BACK PAIN
  2. WATER [WATER] [Concomitant]
  3. LISINOPRIL. [Concomitant]
     Active Substance: LISINOPRIL
  4. ALEVE [Suspect]
     Active Substance: NAPROXEN SODIUM
     Indication: PAIN
     Dosage: 2 DF, UNK
     Route: 048
     Dates: start: 20170919

REACTIONS (1)
  - Product use issue [Recovered/Resolved]

NARRATIVE: CASE EVENT DATE: 20170919
